FAERS Safety Report 6431534-6 (Version None)
Quarter: 2009Q4

REPORT INFORMATION
  Report Type: 
  Country: None (occurrence: None)
  Receive Date: 20091103
  Receipt Date: 20091019
  Transmission Date: 20100525
  Serious: Yes (Hospitalization)
  Sender: FDA-Public Use
  Company Number: 02100-JPN-06-0406

PATIENT
  Age: 66 Year
  Sex: Male
  Weight: 51.2 kg

DRUGS (13)
  1. PLETAL [Suspect]
     Indication: CEREBRAL INFARCTION
     Dosage: 81 MG, QD; ORAL, 81 MG, QD; ORAL
     Route: 048
     Dates: start: 20050805, end: 20060705
  2. PLETAL [Suspect]
     Indication: CEREBRAL INFARCTION
     Dosage: 81 MG, QD; ORAL, 81 MG, QD; ORAL
     Route: 048
     Dates: start: 20060803, end: 20060907
  3. GOSHA-JINKI-GAN (GOSHA-JINKI-GAN) GRANULE [Concomitant]
  4. BASEN (VOGLIBOSE) TABLET [Concomitant]
  5. HITOCOBAMIN M (MECOBALAMIN) CAPSULE [Concomitant]
  6. AMARYL [Concomitant]
  7. MESADORIN S (SODIUM GUALENATE) GRANULE [Concomitant]
  8. DEXALTIN (DEXAMETHASONE) OINTMENT, CREAM [Concomitant]
  9. RINDERON-VG (GENTAMICIN SULFATE, BETAMETHASONE VALERATE) LOTION (EXCEP [Concomitant]
  10. ANDERM (BUFEXAMAC) OINTMENT, CREAM [Concomitant]
  11. NERISONA (DIFLUCORTOLONE VALERATE) LOTION (EXCEPT LOTION FOR EYE) [Concomitant]
  12. TINELAC (SENNOSIDE A+B) TABLET [Concomitant]
  13. MOHRUS (KETOPROFEN) TAPE (INCLUDING POULTICE) [Concomitant]

REACTIONS (10)
  - ANAEMIA [None]
  - CONSTIPATION [None]
  - GASTRITIS ATROPHIC [None]
  - GLOMERULONEPHRITIS RAPIDLY PROGRESSIVE [None]
  - HENOCH-SCHONLEIN PURPURA NEPHRITIS [None]
  - LARGE INTESTINAL ULCER [None]
  - LIPOMA [None]
  - NEPHROLITHIASIS [None]
  - PERIOSTITIS [None]
  - SEPSIS [None]
